FAERS Safety Report 18918514 (Version 2)
Quarter: 2021Q1

REPORT INFORMATION
  Report Type: Report from Study
  Country: US (occurrence: US)
  Receive Date: 20210219
  Receipt Date: 20210324
  Transmission Date: 20210420
  Serious: Yes (Hospitalization)
  Sender: FDA-Public Use
  Company Number: US-BAXTER-2021BAX003131

PATIENT
  Age: 18 Year
  Sex: Female
  Weight: 43.6 kg

DRUGS (17)
  1. CYCLOPHOSPHAMIDE FOR INJECTION, USP [Suspect]
     Active Substance: CYCLOPHOSPHAMIDE
     Dosage: LAST DOSE PRIOR TO SAE
     Route: 065
     Dates: start: 20210104, end: 20210104
  2. CYTARABINE. [Suspect]
     Active Substance: CYTARABINE
     Indication: ACUTE LYMPHOCYTIC LEUKAEMIA
     Dosage: TOTAL DOSE ADMINISTERED IN UNKNOWN COURSE WAS 870 MG
     Route: 065
  3. VINCRISTINE SULFATE. [Suspect]
     Active Substance: VINCRISTINE SULFATE
     Indication: ACUTE LYMPHOCYTIC LEUKAEMIA
     Dosage: TOTAL DOSE ADMINISTERED IN UNKNOWN COURSE WAS 10 MG
     Route: 065
  4. DAUNORUBICIN [Suspect]
     Active Substance: DAUNORUBICIN
     Indication: ACUTE LYMPHOCYTIC LEUKAEMIA
     Dosage: TOTAL DOSE ADMINISTERED IN UNKNOWN COURSE WAS 140 MG
     Route: 065
  5. DAUNORUBICIN [Suspect]
     Active Substance: DAUNORUBICIN
     Dosage: LAST DOSE PRIOR TO SAE
     Route: 065
     Dates: start: 20200916, end: 20200916
  6. MERCAPTOPURINE. [Suspect]
     Active Substance: MERCAPTOPURINE
     Dosage: LAST DOSE PRIOR TO SAE
     Route: 065
     Dates: start: 20210117, end: 20210117
  7. PEG/L?ASPARAGINASE [Suspect]
     Active Substance: PEGASPARGASE
     Indication: ACUTE LYMPHOCYTIC LEUKAEMIA
     Dosage: TOTAL DOSE ADMINISTERED IN UNKNOWN COURSE WAS 5633 MG
     Route: 065
  8. MERCAPTOPURINE. [Suspect]
     Active Substance: MERCAPTOPURINE
     Indication: ACUTE LYMPHOCYTIC LEUKAEMIA
     Dosage: TOTAL DOSE ADMINISTERED IN UNKNOWN COURSE WAS 1050 MG
     Route: 065
  9. PEG/L?ASPARAGINASE [Suspect]
     Active Substance: PEGASPARGASE
     Dosage: LAST DOSE PRIOR TO SAE
     Route: 065
     Dates: start: 20210118, end: 20210118
  10. METHOTREXATE SODIUM. [Suspect]
     Active Substance: METHOTREXATE SODIUM
     Indication: ACUTE LYMPHOCYTIC LEUKAEMIA
     Dosage: TOTAL DOSE ADMINISTERED IN UNKNOWN COURSE WAS 75 MG
     Route: 065
  11. DEXAMETHASONE. [Suspect]
     Active Substance: DEXAMETHASONE
     Indication: ACUTE LYMPHOCYTIC LEUKAEMIA
     Dosage: TOTAL DOSE ADMINISTERED IN UNKNOWN COURSE WAS 197 MG
     Route: 065
  12. CYTARABINE. [Suspect]
     Active Substance: CYTARABINE
     Dosage: LAST DOSE PRIOR TO SAE
     Route: 065
     Dates: start: 20210114, end: 20210114
  13. VINCRISTINE SULFATE. [Suspect]
     Active Substance: VINCRISTINE SULFATE
     Dosage: LAST DOSE PRIOR TO SAE
     Route: 065
     Dates: start: 20210118, end: 20210118
  14. DEXAMETHASONE. [Suspect]
     Active Substance: DEXAMETHASONE
     Dosage: LAST DOSE PRIOR TO SAE
     Route: 065
     Dates: start: 20200915, end: 20200915
  15. CYCLOPHOSPHAMIDE FOR INJECTION, USP [Suspect]
     Active Substance: CYCLOPHOSPHAMIDE
     Indication: ACUTE LYMPHOCYTIC LEUKAEMIA
     Dosage: TOTAL DOSE ADMINISTERED IN UNKNOWN COURSE WAS 1400 MG
     Route: 065
  16. INOTUZUMAB OZOGAMICIN [Suspect]
     Active Substance: INOTUZUMAB OZOGAMICIN
     Indication: ACUTE LYMPHOCYTIC LEUKAEMIA
     Dosage: TOTAL DOSE ADMINISTERED IN UNKNOWN COURSE WAS 4.2 MG
     Route: 065
  17. INOTUZUMAB OZOGAMICIN [Suspect]
     Active Substance: INOTUZUMAB OZOGAMICIN
     Dosage: LAST DOSE PRIOR TO SAE
     Route: 065
     Dates: start: 20201125, end: 20201125

REACTIONS (1)
  - Epistaxis [Recovered/Resolved]

NARRATIVE: CASE EVENT DATE: 20210119
